FAERS Safety Report 6292013-2 (Version None)
Quarter: 2009Q3

REPORT INFORMATION
  Report Type: 
  Country: None (occurrence: None)
  Receive Date: 20090729
  Receipt Date: 20090720
  Transmission Date: 20100115
  Serious: Yes (Hospitalization)
  Sender: FDA-Public Use
  Company Number: JPI-P-008000

PATIENT
  Age: 37 Year
  Sex: Male

DRUGS (6)
  1. XYREM [Suspect]
     Indication: NARCOLEPSY
     Dosage: SEE IMAGE
     Route: 048
     Dates: start: 20081003, end: 20081001
  2. XYREM [Suspect]
     Indication: NARCOLEPSY
     Dosage: SEE IMAGE
     Route: 048
     Dates: start: 20080901, end: 20081002
  3. XYREM [Suspect]
     Indication: NARCOLEPSY
     Dosage: SEE IMAGE
     Route: 048
     Dates: start: 20081001, end: 20081012
  4. XYREM [Suspect]
     Indication: NARCOLEPSY
     Dosage: SEE IMAGE
     Route: 048
     Dates: start: 20090618, end: 20090701
  5. XYREM [Suspect]
     Indication: NARCOLEPSY
     Dosage: SEE IMAGE
     Route: 048
  6. XYREM [Suspect]
     Indication: NARCOLEPSY
     Dosage: SEE IMAGE
     Route: 048
     Dates: start: 20081013

REACTIONS (9)
  - BIPOLAR DISORDER [None]
  - FATIGUE [None]
  - HEART RATE INCREASED [None]
  - MANIA [None]
  - MIDDLE INSOMNIA [None]
  - PAIN [None]
  - RASH [None]
  - SEDATION [None]
  - VITAMIN D DECREASED [None]
